FAERS Safety Report 10047033 (Version 1)
Quarter: 2014Q1

REPORT INFORMATION
  Report Type: Spontaneous
  Country: GB (occurrence: None)
  Receive Date: 20140327
  Receipt Date: 20140327
  Transmission Date: 20141002
  Serious: Yes (Death)
  Sender: FDA-Public Use
  Company Number: B0979777A

PATIENT
  Sex: 0

DRUGS (1)
  1. ZANAMIVIR [Suspect]
     Indication: H1N1 INFLUENZA
     Dosage: UNK / TRANSPLACENTAL
     Route: 064

REACTIONS (5)
  - Maternal drugs affecting foetus [None]
  - Hydrops foetalis [None]
  - Isoimmune haemolytic disease [None]
  - Placental chorioangioma [None]
  - Death neonatal [None]
